FAERS Safety Report 24706598 (Version 3)
Quarter: 2025Q1

REPORT INFORMATION
  Report Type: Spontaneous
  Country: US (occurrence: US)
  Receive Date: 20241206
  Receipt Date: 20250127
  Transmission Date: 20250408
  Serious: No
  Sender: NOVARTIS
  Company Number: US-002147023-NVSC2024US233284

PATIENT

DRUGS (1)
  1. PLUVICTO [Suspect]
     Active Substance: LUTETIUM LU-177 VIPIVOTIDE TETRAXETAN
     Indication: Product used for unknown indication
     Route: 065

REACTIONS (3)
  - General physical health deterioration [Unknown]
  - Prostatic specific antigen increased [Unknown]
  - Haemoglobin decreased [Unknown]
